FAERS Safety Report 17979194 (Version 2)
Quarter: 2020Q3

REPORT INFORMATION
  Report Type: Spontaneous
  Country: GB (occurrence: GB)
  Receive Date: 20200703
  Receipt Date: 20200708
  Transmission Date: 20201103
  Serious: Yes (Death, Other)
  Sender: FDA-Public Use
  Company Number: GB-PFIZER INC-2012085364

PATIENT
  Age: 2 Year
  Sex: Female
  Weight: 12.5 kg

DRUGS (1)
  1. PROPOFOL. [Suspect]
     Active Substance: PROPOFOL
     Indication: SEDATION
     Dosage: 4.8 MG/KG/HOUR

REACTIONS (7)
  - Off label use [Fatal]
  - Hyperlipidaemia [Unknown]
  - Product use issue [Fatal]
  - Nodal arrhythmia [Fatal]
  - Metabolic acidosis [Unknown]
  - Cardiac arrest [Fatal]
  - Cardiac failure [Fatal]
